FAERS Safety Report 6903818-6 (Version None)
Quarter: 2010Q3

REPORT INFORMATION
  Report Type: 
  Country: None (occurrence: None)
  Receive Date: 20100804
  Receipt Date: 20081218
  Transmission Date: 20110219
  Serious: No
  Sender: FDA-Public Use
  Company Number: US-PFIZER INC-2008157628

PATIENT
  Sex: Female
  Weight: 76.203 kg

DRUGS (3)
  1. LYRICA [Suspect]
     Indication: PAIN
     Dosage: 50 MG, 2X/DAY
     Dates: start: 20081201
  2. CODEINE SULFATE [Suspect]
  3. LUNESTA [Concomitant]
     Dosage: UNK

REACTIONS (2)
  - AGITATION [None]
  - INSOMNIA [None]
